FAERS Safety Report 14780508 (Version 1)
Quarter: 2018Q2

REPORT INFORMATION
  Report Type: Report from Study
  Country: US (occurrence: US)
  Receive Date: 20180419
  Receipt Date: 20180419
  Transmission Date: 20180711
  Serious: Yes (Other)
  Sender: FDA-Public Use
  Company Number: US-TAKEDA-2018TUS010337

PATIENT
  Age: 45 Year
  Sex: Female

DRUGS (1)
  1. PONATINIB [Suspect]
     Active Substance: PONATINIB
     Indication: CHRONIC MYELOID LEUKAEMIA
     Dosage: 15 MG, QD
     Route: 048

REACTIONS (24)
  - Chest pain [Unknown]
  - Gingival bleeding [Unknown]
  - Depression [Unknown]
  - Self-injurious ideation [Unknown]
  - Haematuria [Unknown]
  - Neck pain [Unknown]
  - Pain [Unknown]
  - Back pain [Unknown]
  - Headache [Unknown]
  - Vision blurred [Unknown]
  - Skin papilloma [Unknown]
  - Diarrhoea [Unknown]
  - Fatigue [Unknown]
  - Cervix carcinoma [Unknown]
  - Thrombocytopenia [Unknown]
  - Arthralgia [Unknown]
  - Pancytopenia [Unknown]
  - Vaginal haemorrhage [Unknown]
  - Epistaxis [Unknown]
  - Pain in extremity [Unknown]
  - Initial insomnia [Unknown]
  - Diabetes mellitus [Unknown]
  - Dry mouth [Unknown]
  - Decreased appetite [Unknown]

NARRATIVE: CASE EVENT DATE: 20160407
